FAERS Safety Report 6024319-6 (Version None)
Quarter: 2008Q4

REPORT INFORMATION
  Report Type: 
  Country: None (occurrence: None)
  Receive Date: 20081229
  Receipt Date: 20081218
  Transmission Date: 20090506
  Serious: Yes (Other)
  Sender: FDA-Public Use
  Company Number: 2008SP024395

PATIENT
  Age: 52 Year
  Sex: Male

DRUGS (1)
  1. PEGETRON (PEGINTERFERON ALFA-2B W/RIBAVIRIN) (PEGYLATED INTERFERON ALF [Suspect]
     Indication: HEPATITIS C
     Dosage: 100 MCG; SC; PO
     Route: 058
     Dates: start: 20070101

REACTIONS (2)
  - LIVER TRANSPLANT [None]
  - TREATMENT NONCOMPLIANCE [None]
